FAERS Safety Report 5777236-0 (Version None)
Quarter: 2008Q2

REPORT INFORMATION
  Report Type: 
  Country: None (occurrence: None)
  Receive Date: 20080618
  Receipt Date: 20080610
  Transmission Date: 20081010
  Serious: Yes (Other)
  Sender: FDA-Public Use
  Company Number: CA-ALLERGAN-0807175US

PATIENT
  Sex: Female

DRUGS (4)
  1. BOTOX COSMETIC [Suspect]
     Indication: DRUG USE FOR UNKNOWN INDICATION
     Dosage: 100 UNITS, SINGLE
  2. SENSORCAINE [Suspect]
  3. LITHIUM CARBONATE [Concomitant]
  4. MORPHINE [Concomitant]
     Route: 008

REACTIONS (3)
  - APHONIA [None]
  - HYPOTENSION [None]
  - RESPIRATORY ARREST [None]
